FAERS Safety Report 8802127 (Version 1)
Quarter: 2012Q4

REPORT INFORMATION
  Report Type: 
  Country: US (occurrence: US)
  Receive Date: 20120921
  Receipt Date: 20120921
  Transmission Date: 20130627
  Serious: Yes (Hospitalization)
  Sender: FDA-Public Use
  Company Number: US-BAYER-2012-095512

PATIENT
  Age: 77 Year
  Sex: Female
  Weight: 67 kg

DRUGS (14)
  1. XARELTO [Suspect]
     Indication: CEREBROVASCULAR ACCIDENT PROPHYLAXIS
     Dosage: 15 mg, UNK
     Route: 048
     Dates: start: 20120904, end: 20120904
  2. XARELTO [Interacting]
     Indication: ATRIAL FIBRILLATION
  3. ACETYLSALICYLIC ACID (} 100 MG) [Interacting]
     Indication: PRODUCT USED FOR UNKNOWN INDICATION
     Dates: start: 20120902, end: 20120905
  4. ALLOPURINOL [Concomitant]
  5. AMIODARONE [Concomitant]
  6. ATORVASTATIN [Concomitant]
  7. ZITHROMAX [Concomitant]
  8. ROCEPHIN [Concomitant]
  9. COLACE [Concomitant]
  10. LEXAPRO [Concomitant]
  11. AVALOX [Concomitant]
  12. PRILOSEC [Concomitant]
  13. RANEXA [Concomitant]
  14. INSULIN [Concomitant]

REACTIONS (5)
  - Dyspnoea [Not Recovered/Not Resolved]
  - Haematocrit decreased [Unknown]
  - Epistaxis [Recovered/Resolved]
  - Melaena [Unknown]
  - Haemothorax [Recovered/Resolved]
